FAERS Safety Report 5899589-5 (Version None)
Quarter: 2008Q3

REPORT INFORMATION
  Report Type: 
  Country: None (occurrence: None)
  Receive Date: 20080926
  Receipt Date: 20080919
  Transmission Date: 20090109
  Serious: Yes (Other)
  Sender: FDA-Public Use
  Company Number: PHNU2007DE03386

PATIENT
  Age: 50 Year
  Sex: Female

DRUGS (2)
  1. DIOVAN HCT [Suspect]
     Indication: HYPERTENSION
     Dosage: 160 MG VALSARTAN/25 MG HYDROCHLOROTHIAZIDE
     Dates: end: 20060101
  2. CO-DIOVAN FORTE [Suspect]
     Indication: HYPERTENSION
     Dates: start: 20060101

REACTIONS (8)
  - LIMB DISCOMFORT [None]
  - MUSCLE ATROPHY [None]
  - MUSCULAR DYSTROPHY [None]
  - MUSCULAR WEAKNESS [None]
  - PHARYNGEAL OEDEMA [None]
  - POLLAKIURIA [None]
  - WALKING AID USER [None]
  - WEIGHT DECREASED [None]
